FAERS Safety Report 9119777 (Version 1)
Quarter: 2013Q1

REPORT INFORMATION
  Report Type: Spontaneous
  Country: CA (occurrence: CA)
  Receive Date: 20130226
  Receipt Date: 20130226
  Transmission Date: 20140127
  Serious: Yes (Hospitalization)
  Sender: FDA-Public Use
  Company Number: CA-ELI_LILLY_AND_COMPANY-CA201302007562

PATIENT
  Age: 64 Year
  Sex: Female

DRUGS (13)
  1. FORTEO [Suspect]
     Indication: OSTEOPOROSIS
     Dosage: 20 UG, QD
     Route: 058
     Dates: start: 20120719
  2. SYNTHROID [Concomitant]
  3. LOPRESSOR [Concomitant]
  4. ATACAND [Concomitant]
  5. COUMADIN [Concomitant]
  6. CALCIUM [Concomitant]
  7. VITAMIN D [Concomitant]
  8. LYRICA [Concomitant]
  9. ESTROGEL [Concomitant]
  10. ANDRIOL [Concomitant]
  11. MEDROXY [Concomitant]
  12. ELAVIL [Concomitant]
  13. MORPHINE [Concomitant]

REACTIONS (2)
  - Osteonecrosis [Not Recovered/Not Resolved]
  - Nasopharyngitis [Not Recovered/Not Resolved]
